FAERS Safety Report 6181382-X (Version None)
Quarter: 2009Q2

REPORT INFORMATION
  Report Type: 
  Country: None (occurrence: None)
  Receive Date: 20090505
  Receipt Date: 20090505
  Transmission Date: 20091009
  Serious: Yes (Other)
  Sender: FDA-Public Use
  Company Number: None

PATIENT
  Age: 85 Year
  Sex: Male
  Weight: 85.7298 kg

DRUGS (18)
  1. AMLODIPINE [Suspect]
     Indication: HYPERTENSION
     Dates: start: 20040601
  2. TYLENOL [Concomitant]
  3. SODIUM CHLORIDE [Concomitant]
  4. COLCHICINE [Concomitant]
  5. ASPIRIN [Concomitant]
  6. M.V.I. [Concomitant]
  7. VANCOMYCIN HCL [Concomitant]
  8. METOPROLOL [Concomitant]
  9. NORVASC [Concomitant]
  10. POTASSIUM CHLORIDE [Concomitant]
  11. PREVACID [Concomitant]
  12. SIMVASTATIN [Concomitant]
  13. VIT-C [Concomitant]
  14. CULTURELLE [Concomitant]
  15. COUMADIN [Concomitant]
  16. OMEPRAZOLE [Concomitant]
  17. FOLIC ACID [Concomitant]
  18. EXEON PATCH (NEURO) [Concomitant]

REACTIONS (3)
  - ASTHENIA [None]
  - PRODUCT QUALITY ISSUE [None]
  - SYNCOPE [None]
